FAERS Safety Report 23207611 (Version 1)
Quarter: 2023Q4

REPORT INFORMATION
  Report Type: Report from Study
  Country: US (occurrence: US)
  Receive Date: 20231120
  Receipt Date: 20231120
  Transmission Date: 20240110
  Serious: Yes (Other)
  Sender: FDA-Public Use
  Company Number: US-ALXN-A202305579

PATIENT
  Sex: Male

DRUGS (1)
  1. ULTOMIRIS [Suspect]
     Active Substance: RAVULIZUMAB-CWVZ
     Indication: Myasthenia gravis
     Dosage: UNK
     Route: 065

REACTIONS (16)
  - Lower respiratory tract infection [Recovered/Resolved]
  - Petechiae [Unknown]
  - Diplopia [Not Recovered/Not Resolved]
  - Balance disorder [Unknown]
  - Diaphragmatic disorder [Unknown]
  - Spinal stenosis [Unknown]
  - Road traffic accident [Unknown]
  - Gait disturbance [Not Recovered/Not Resolved]
  - Speech disorder [Not Recovered/Not Resolved]
  - Muscular weakness [Unknown]
  - Pruritus [Unknown]
  - Dizziness [Unknown]
  - Nasopharyngitis [Recovered/Resolved]
  - Fatigue [Unknown]
  - Wound complication [Unknown]
  - Dysphagia [Unknown]

NARRATIVE: CASE EVENT DATE: 20230412
